FAERS Safety Report 14192031 (Version 1)
Quarter: 2017Q4

REPORT INFORMATION
  Report Type: Spontaneous
  Country: US (occurrence: US)
  Receive Date: 20171115
  Receipt Date: 20171115
  Transmission Date: 20180321
  Serious: No
  Sender: FDA-Public Use
  Company Number: US-PERRIGO-17US003399

PATIENT
  Age: 48 Year
  Sex: Female
  Weight: 81.63 kg

DRUGS (3)
  1. NICOTINE POLACRILEX [Suspect]
     Active Substance: NICOTINE
     Indication: SMOKING CESSATION THERAPY
     Dosage: 4 MG, 10 TO 15 TIMES A DAY
     Route: 002
     Dates: start: 201610
  2. NICOTINE POLACRILEX [Suspect]
     Active Substance: NICOTINE
     Dosage: 4 MG, 4 TO 5 TIMES A DAY
     Route: 002
  3. NICOTINE POLACRILEX [Suspect]
     Active Substance: NICOTINE
     Dosage: 4 MG, SINGLE
     Route: 002
     Dates: start: 201704, end: 201704

REACTIONS (2)
  - Expired product administered [Recovered/Resolved]
  - Nausea [Recovered/Resolved]

NARRATIVE: CASE EVENT DATE: 201704
